FAERS Safety Report 6740884-5 (Version None)
Quarter: 2010Q2

REPORT INFORMATION
  Report Type: 
  Country: None (occurrence: None)
  Receive Date: 20100526
  Receipt Date: 20100517
  Transmission Date: 20101027
  Serious: No
  Sender: FDA-Public Use
  Company Number: US-BIOGENIDEC-2010BI016585

PATIENT
  Age: 51 Year
  Sex: Female

DRUGS (1)
  1. TYSABRI [Suspect]
     Indication: MULTIPLE SCLEROSIS
     Route: 042
     Dates: start: 20100409

REACTIONS (6)
  - BALANCE DISORDER [None]
  - DEPRESSED MOOD [None]
  - DYSURIA [None]
  - FATIGUE [None]
  - PAIN IN EXTREMITY [None]
  - TREMOR [None]
